FAERS Safety Report 10157472 (Version 2)
Quarter: 2014Q2

REPORT INFORMATION
  Report Type: Spontaneous
  Country: CA (occurrence: CA)
  Receive Date: 20140507
  Receipt Date: 20140507
  Transmission Date: 20141212
  Serious: Yes (Other)
  Sender: FDA-Public Use
  Company Number: CA-BAYER-2014-063158

PATIENT
  Age: 63 Year
  Sex: Male

DRUGS (3)
  1. STIVARGA [Suspect]
     Indication: COLORECTAL CANCER STAGE IV
     Dosage: FULL STRENGHT
     Dates: start: 201402, end: 2014
  2. STIVARGA [Suspect]
     Indication: COLORECTAL CANCER STAGE IV
     Dosage: STRENGTH
     Dates: start: 2014, end: 2014
  3. STIVARGA [Suspect]
     Indication: COLORECTAL CANCER STAGE IV
     Dosage: STRENGTH
     Dates: start: 2014, end: 201404

REACTIONS (10)
  - Colorectal cancer [Not Recovered/Not Resolved]
  - Drug ineffective [None]
  - Palmar-plantar erythrodysaesthesia syndrome [Recovering/Resolving]
  - Fatigue [Not Recovered/Not Resolved]
  - Night sweats [Not Recovered/Not Resolved]
  - Weight decreased [None]
  - Decreased appetite [None]
  - Headache [Recovered/Resolved]
  - Pyrexia [Recovered/Resolved]
  - Decreased appetite [Not Recovered/Not Resolved]
